FAERS Safety Report 6436960-7 (Version None)
Quarter: 2009Q4

REPORT INFORMATION
  Report Type: 
  Country: None (occurrence: None)
  Receive Date: 20091112
  Receipt Date: 20091103
  Transmission Date: 20100525
  Serious: Yes (Hospitalization)
  Sender: FDA-Public Use
  Company Number: US-BIOGENIDEC-2009BI020022

PATIENT
  Age: 53 Year
  Sex: Female

DRUGS (2)
  1. TYSABRI [Suspect]
     Indication: MULTIPLE SCLEROSIS
     Route: 042
     Dates: start: 20070726
  2. COUMADIN [Concomitant]
     Indication: CORONARY ARTERY DISEASE

REACTIONS (15)
  - ANTICOAGULATION DRUG LEVEL ABOVE THERAPEUTIC [None]
  - CYSTITIS [None]
  - DEEP VEIN THROMBOSIS [None]
  - EAR HAEMORRHAGE [None]
  - EPISTAXIS [None]
  - HERPES ZOSTER [None]
  - MALAISE [None]
  - MIGRAINE [None]
  - NASAL SEPTUM PERFORATION [None]
  - OEDEMA PERIPHERAL [None]
  - PULMONARY THROMBOSIS [None]
  - PYREXIA [None]
  - SEPSIS [None]
  - THROMBOSIS [None]
  - URINARY BLADDER HAEMORRHAGE [None]
